FAERS Safety Report 10606763 (Version 1)
Quarter: 2014Q4

REPORT INFORMATION
  Report Type: Spontaneous
  Country: US (occurrence: None)
  Receive Date: 20141124
  Receipt Date: 20141124
  Transmission Date: 20150529
  Serious: Yes (Other)
  Sender: FDA-Public Use
  Company Number: None

PATIENT
  Age: 14 Year
  Sex: Male
  Weight: 31.75 kg

DRUGS (1)
  1. METHLYPHENIDATE HCL [Suspect]
     Active Substance: METHYLPHENIDATE HYDROCHLORIDE
     Indication: ATTENTION DEFICIT/HYPERACTIVITY DISORDER
     Dosage: 1 PILL ONCE DAILY TAKEN BY MOUTH
     Route: 048
     Dates: start: 20131105, end: 20140201

REACTIONS (7)
  - Product quality issue [None]
  - Impulse-control disorder [None]
  - Drug ineffective [None]
  - Abnormal behaviour [None]
  - Educational problem [None]
  - Product substitution issue [None]
  - Disturbance in attention [None]

NARRATIVE: CASE EVENT DATE: 20131105
